FAERS Safety Report 12336595 (Version 1)
Quarter: 2016Q2

REPORT INFORMATION
  Report Type: Spontaneous
  Country: US (occurrence: None)
  Receive Date: 20160504
  Receipt Date: 20160504
  Transmission Date: 20160815
  Serious: Yes (Life-Threatening, Hospitalization, Disabling)
  Sender: FDA-Public Use
  Company Number: None

PATIENT
  Age: 29 Year
  Sex: Female
  Weight: 58.97 kg

DRUGS (6)
  1. PSEUDOEPHEDRINE [Concomitant]
     Active Substance: PSEUDOEPHEDRINE
  2. ONE A DAY FOR WOMEN [Concomitant]
  3. AMPHETAMINE SALTS 30 MG TAB COREP 64720-0136-10 GENERIC EQUIVALENT FOR ADDERALL [Suspect]
     Active Substance: AMPHETAMINE ASPARTATE\AMPHETAMINE SULFATE\DEXTROAMPHETAMINE SACCHARATE\DEXTROAMPHETAMINE SULFATE
     Indication: ATTENTION DEFICIT/HYPERACTIVITY DISORDER
     Route: 048
     Dates: start: 201010, end: 20160504
  4. CALCIUM CARBONATE. [Concomitant]
     Active Substance: CALCIUM CARBONATE
  5. VITAMIN D3 [Concomitant]
     Active Substance: CHOLECALCIFEROL
  6. CETIRIZINE HYDROCHLORIDE. [Concomitant]
     Active Substance: CETIRIZINE HYDROCHLORIDE

REACTIONS (14)
  - Cardiac failure [None]
  - Acute myocardial infarction [None]
  - Dizziness [None]
  - Tachycardia [None]
  - Vertigo [None]
  - Rhinitis allergic [None]
  - Anaemia [None]
  - Hypoaesthesia [None]
  - Blood glucose decreased [None]
  - Fatigue [None]
  - Dyspnoea [None]
  - Liver function test abnormal [None]
  - Asthma [None]
  - Exposure during pregnancy [None]

NARRATIVE: CASE EVENT DATE: 20160504
